FAERS Safety Report 19377731 (Version 2)
Quarter: 2021Q2

REPORT INFORMATION
  Report Type: Spontaneous
  Country: BR (occurrence: BR)
  Receive Date: 20210604
  Receipt Date: 20210621
  Transmission Date: 20210717
  Serious: Yes (Other)
  Sender: FDA-Public Use
  Company Number: BR-TAKEDA-2021TUS034441

PATIENT
  Age: 29 Year
  Sex: Male

DRUGS (5)
  1. AZATHIOPRINE. [Concomitant]
     Active Substance: AZATHIOPRINE
     Indication: PRODUCT USED FOR UNKNOWN INDICATION
     Dosage: UNK
     Route: 065
     Dates: start: 201702
  2. MESALAZINE [Suspect]
     Active Substance: MESALAMINE
     Indication: COLITIS ULCERATIVE
     Dosage: 3.2 GRAM, QD
     Route: 065
  3. URSODEOXYCHOLIC ACID [Concomitant]
     Active Substance: URSODIOL
     Indication: PRODUCT USED FOR UNKNOWN INDICATION
     Dosage: 1.2 GRAM, QD
     Route: 065
  4. VEDOLIZUMAB [Suspect]
     Active Substance: VEDOLIZUMAB
     Indication: COLITIS ULCERATIVE
     Dosage: UNK
     Route: 065
  5. MESALAZINE [Suspect]
     Active Substance: MESALAMINE
     Dosage: UNK
     Route: 054

REACTIONS (12)
  - Abnormal faeces [Unknown]
  - Colitis ulcerative [Unknown]
  - Biliary dilatation [Unknown]
  - Abdominal pain [Unknown]
  - Diarrhoea haemorrhagic [Unknown]
  - Defaecation disorder [Unknown]
  - Diarrhoea infectious [Unknown]
  - Lymphadenopathy [Unknown]
  - Condition aggravated [Unknown]
  - Strongyloidiasis [Unknown]
  - Arthralgia [Unknown]
  - Pancreatic disorder [Unknown]

NARRATIVE: CASE EVENT DATE: 201510
